FAERS Safety Report 7313038-1 (Version None)
Quarter: 2011Q1

REPORT INFORMATION
  Report Type: 
  Country: None (occurrence: None)
  Receive Date: 20110225
  Receipt Date: 20110217
  Transmission Date: 20110831
  Serious: Yes (Hospitalization)
  Sender: FDA-Public Use
  Company Number: US-BIOGENIDEC-2009BI039193

PATIENT
  Age: 54 Year
  Sex: Female

DRUGS (7)
  1. AVONEX [Suspect]
     Route: 030
     Dates: start: 20100207, end: 20100207
  2. UNKNOWN BLOOD PRESSURE MEDICATIONS [Concomitant]
  3. AVONEX [Suspect]
     Indication: MULTIPLE SCLEROSIS
     Route: 030
     Dates: start: 20040117, end: 20061002
  4. UNKNOWN MEDICATION FOR PEOPLE WITH CONGESTIVE HEART FAILURE [Concomitant]
  5. AVONEX [Suspect]
     Route: 030
     Dates: start: 20070126, end: 20070801
  6. AVONEX [Suspect]
     Route: 030
     Dates: start: 20080323, end: 20090904
  7. PLAVIX [Concomitant]

REACTIONS (6)
  - ARTERIAL OCCLUSIVE DISEASE [None]
  - ACUTE MYOCARDIAL INFARCTION [None]
  - ANXIETY [None]
  - DEPRESSION [None]
  - MYOCARDIAL INFARCTION [None]
  - CARDIAC PROCEDURE COMPLICATION [None]
